FAERS Safety Report 7210503-2 (Version None)
Quarter: 2011Q1

REPORT INFORMATION
  Report Type: 
  Country: None (occurrence: None)
  Receive Date: 20110105
  Receipt Date: 20101227
  Transmission Date: 20110831
  Serious: Yes (Death, Hospitalization, Other)
  Sender: FDA-Public Use
  Company Number: FR-ELI_LILLY_AND_COMPANY-FR201012003032

PATIENT
  Age: 68 Year
  Sex: Male
  Weight: 73 kg

DRUGS (6)
  1. FORTEO [Suspect]
     Indication: OSTEOPOROSIS
     Dosage: 20 UG, DAILY (1/D)
     Route: 058
     Dates: start: 20090903, end: 20101127
  2. PREVISCAN [Concomitant]
     Dosage: 20 MG, DAILY (1/D)
     Route: 048
  3. COVERSYL [Concomitant]
     Dosage: 5 MG, DAILY (1/D)
     Route: 048
  4. FLECAINIDE ACETATE [Concomitant]
     Dosage: 200 MG, DAILY (1/D)
     Route: 048
  5. SIMVASTATIN [Concomitant]
     Dosage: 40 MG, DAILY (1/D)
     Route: 065
  6. LYRICA [Concomitant]
     Dosage: 75 MG, DAILY (1/D)
     Route: 048

REACTIONS (4)
  - MALIGNANT PERITONEAL NEOPLASM [None]
  - PANCREATIC CARCINOMA [None]
  - ABDOMINAL PAIN [None]
  - HEPATIC NEOPLASM MALIGNANT [None]
